FAERS Safety Report 5234953-9 (Version None)
Quarter: 2007Q1

REPORT INFORMATION
  Report Type: 
  Country: None (occurrence: None)
  Receive Date: 20070210
  Receipt Date: 20070131
  Transmission Date: 20070707
  Serious: Yes (Hospitalization, Other)
  Sender: FDA-Public Use
  Company Number: BE-ABBOTT-07P-013-0355565-00

PATIENT
  Age: 75 Year
  Sex: Female

DRUGS (2)
  1. DEPAKENE [Suspect]
     Indication: EPILEPSY
  2. DEPAKENE [Suspect]
     Dates: start: 20061107

REACTIONS (3)
  - BLISTER [None]
  - ERYTHEMA [None]
  - SKIN EXFOLIATION [None]
